FAERS Safety Report 7378049-9 (Version None)
Quarter: 2011Q1

REPORT INFORMATION
  Report Type: 
  Country: None (occurrence: None)
  Receive Date: 20110328
  Receipt Date: 20110318
  Transmission Date: 20110831
  Serious: Yes (Hospitalization, Disabling, Other)
  Sender: FDA-Public Use
  Company Number: BR-SANOFI-AVENTIS-2011SA016897

PATIENT
  Sex: Male
  Weight: 70 kg

DRUGS (8)
  1. SOLOSTAR [Suspect]
     Dates: start: 20070101
  2. ENALAPRIL MALEATE [Concomitant]
     Route: 048
  3. SIMVASTATIN [Concomitant]
     Route: 048
  4. AAS [Concomitant]
     Indication: PROPHYLAXIS
     Route: 048
  5. ALL OTHER THERAPEUTIC PRODUCTS [Concomitant]
     Route: 048
  6. LANTUS [Suspect]
     Indication: TYPE 1 DIABETES MELLITUS
     Route: 058
     Dates: start: 20070101
  7. HYDROCHLOROTHIAZIDE/METOPROLOL [Concomitant]
     Route: 048
  8. SPIRONOLACTONE [Concomitant]
     Route: 048

REACTIONS (11)
  - VISUAL IMPAIRMENT [None]
  - HYPERHIDROSIS [None]
  - DIZZINESS [None]
  - ANGIOPATHY [None]
  - ARTERIAL OCCLUSIVE DISEASE [None]
  - MEDICATION ERROR [None]
  - HYPOGLYCAEMIA [None]
  - CONDITION AGGRAVATED [None]
  - GANGRENE [None]
  - NOSOCOMIAL INFECTION [None]
  - HYPERGLYCAEMIA [None]
